FAERS Safety Report 25423276 (Version 3)
Quarter: 2025Q4

REPORT INFORMATION
  Report Type: Spontaneous
  Country: JP (occurrence: JP)
  Receive Date: 20250611
  Receipt Date: 20251002
  Transmission Date: 20260117
  Serious: Yes (Hospitalization, Other)
  Sender: BRISTOL-MYERS SQUIBB COMPANY
  Company Number: JP-BRISTOL-MYERS SQUIBB COMPANY-BMS-2019-034272

PATIENT
  Age: 71 Year
  Sex: Male
  Weight: 61.4 kg

DRUGS (16)
  1. YERVOY [Suspect]
     Active Substance: IPILIMUMAB
     Indication: Malignant melanoma
     Dosage: THE 1ST COURSE
     Dates: start: 20191226, end: 20191226
  2. YERVOY [Suspect]
     Active Substance: IPILIMUMAB
     Dosage: THE 2ND COURSE
     Dates: start: 20200116, end: 20200116
  3. YERVOY [Suspect]
     Active Substance: IPILIMUMAB
     Dosage: THE 3RD COURSE
     Dates: start: 20200206, end: 20200206
  4. OPDIVO [Suspect]
     Active Substance: NIVOLUMAB
     Indication: Malignant melanoma
     Dosage: 25 TIMES
     Dates: start: 20181217, end: 20191212
  5. OPDIVO [Suspect]
     Active Substance: NIVOLUMAB
     Dosage: THE 1ST COURSE
     Dates: start: 20191226, end: 20191226
  6. OPDIVO [Suspect]
     Active Substance: NIVOLUMAB
     Dosage: THE 2ND COURSE
     Dates: start: 20200116, end: 20200116
  7. OPDIVO [Suspect]
     Active Substance: NIVOLUMAB
     Dosage: THE 3RD COURSE
     Dates: start: 20211006, end: 20211006
  8. OPDIVO [Suspect]
     Active Substance: NIVOLUMAB
     Dosage: THE 1ST COURSE
     Dates: start: 20211110, end: 20211110
  9. OPDIVO [Suspect]
     Active Substance: NIVOLUMAB
     Dosage: THE 3RD COURSE
     Dates: start: 20211208, end: 20211208
  10. OPDIVO [Suspect]
     Active Substance: NIVOLUMAB
     Dosage: 25 TIMES
     Dates: start: 20200127, end: 20200210
  11. OPALMON [Suspect]
     Active Substance: LIMAPROST
     Indication: Lumbar spinal stenosis
     Dosage: AFTER EACH MEAL
  12. DACARBAZINE [Suspect]
     Active Substance: DACARBAZINE
     Indication: Product used for unknown indication
     Dosage: 5 COURSES
     Dates: start: 20200603, end: 20201021
  13. PEMBROLIZUMAB [Suspect]
     Active Substance: PEMBROLIZUMAB
     Indication: Product used for unknown indication
     Dosage: 9 COURSES
     Dates: start: 20201118, end: 20210526
  14. CARBOPLATIN [Suspect]
     Active Substance: CARBOPLATIN
     Indication: Product used for unknown indication
     Dosage: 4 TIMES
     Dates: start: 20210623, end: 20210915
  15. LYRICA [Concomitant]
     Active Substance: PREGABALIN
     Indication: Product used for unknown indication
     Dosage: AFTER BREAKFAST AND DINNER
  16. PACLITAXEL [Concomitant]
     Active Substance: PACLITAXEL
     Indication: Product used for unknown indication

REACTIONS (6)
  - Myositis [Recovered/Resolved]
  - Thirst [Recovering/Resolving]
  - Amylase increased [Recovering/Resolving]
  - Nasal congestion [Unknown]
  - Deep vein thrombosis [Recovering/Resolving]
  - Herpes zoster [Recovered/Resolved]

NARRATIVE: CASE EVENT DATE: 20190328
